FAERS Safety Report 24104899 (Version 1)
Quarter: 2024Q3

REPORT INFORMATION
  Report Type: Spontaneous
  Country: GB (occurrence: GB)
  Receive Date: 20240717
  Receipt Date: 20240717
  Transmission Date: 20241017
  Serious: Yes (Disabling, Other)
  Sender: TEVA
  Company Number: None

PATIENT

DRUGS (3)
  1. SOLIFENACIN [Suspect]
     Active Substance: SOLIFENACIN
     Indication: Paruresis
     Route: 065
  2. FINASTERIDE;TAMSULOSIN [Concomitant]
     Indication: Paruresis
     Dosage: TAMSULOSIN, FINASTERIDE 5MG
  3. FINASTERIDE [Concomitant]
     Active Substance: FINASTERIDE
     Indication: Paruresis

REACTIONS (5)
  - Sperm concentration zero [Not Recovered/Not Resolved]
  - Nightmare [Unknown]
  - Dysuria [Unknown]
  - Dry mouth [Unknown]
  - Dizziness [Unknown]

NARRATIVE: CASE EVENT DATE: 20240624
